FAERS Safety Report 5558013-2 (Version None)
Quarter: 2007Q4

REPORT INFORMATION
  Report Type: 
  Country: None (occurrence: None)
  Receive Date: 20071211
  Receipt Date: 20071204
  Transmission Date: 20080405
  Serious: Yes (Hospitalization)
  Sender: FDA-Public Use
  Company Number: 2007SP024327

PATIENT
  Age: 73 Year
  Sex: Female
  Weight: 65 kg

DRUGS (16)
  1. TEMODAL [Suspect]
     Indication: GLIOBLASTOMA
     Dosage: 150 MG/M2;QD;PO; 340 MG;QD;PO
     Route: 048
     Dates: start: 20071030, end: 20071103
  2. TEMODAL [Suspect]
     Indication: GLIOBLASTOMA
     Dosage: 150 MG/M2;QD;PO; 340 MG;QD;PO
     Route: 048
     Dates: start: 20070928
  3. LEVOTHYROX [Concomitant]
  4. PANTOPRAZOLEE [Concomitant]
  5. RYTHMOL [Concomitant]
  6. INDAPAMIDE [Concomitant]
  7. TANAKAN [Concomitant]
  8. ZOPICLONE [Concomitant]
  9. DIAMICRON [Concomitant]
  10. KARDEGIC [Concomitant]
  11. ACTOS [Concomitant]
  12. TARDYFERON [Concomitant]
  13. NORFLOXACIN [Concomitant]
  14. ACETAMINOPHEN [Concomitant]
  15. METOCLOPRAMIDE [Concomitant]
  16. FORLAX [Concomitant]

REACTIONS (3)
  - FEBRILE BONE MARROW APLASIA [None]
  - HAEMATOTOXICITY [None]
  - HYPOKALAEMIA [None]
